FAERS Safety Report 5784267-3 (Version None)
Quarter: 2008Q2

REPORT INFORMATION
  Report Type: 
  Country: None (occurrence: None)
  Receive Date: 20080624
  Receipt Date: 20070511
  Transmission Date: 20081010
  Serious: No
  Sender: FDA-Public Use
  Company Number: US-ASTRAZENECA-2007UW11284

PATIENT
  Age: 55 Year
  Sex: Male
  Weight: 62.6 kg

DRUGS (6)
  1. PULMICORT RESPULES [Suspect]
     Indication: CHRONIC OBSTRUCTIVE PULMONARY DISEASE
     Dosage: .5MG/2ML
     Route: 055
     Dates: start: 20070508
  2. XOPENEX [Concomitant]
     Dates: start: 20060101
  3. SPIRIVA [Concomitant]
  4. ADVAIR DISKUS 100/50 [Concomitant]
  5. XANAX [Concomitant]
  6. LUNESTA [Concomitant]

REACTIONS (2)
  - ANXIETY [None]
  - MEDICATION ERROR [None]
